FAERS Safety Report 16717675 (Version 1)
Quarter: 2019Q3

REPORT INFORMATION
  Report Type: Spontaneous
  Country: US (occurrence: US)
  Receive Date: 20190819
  Receipt Date: 20190819
  Transmission Date: 20191005
  Serious: No
  Sender: FDA-Public Use
  Company Number: US-SA-2019SA227448

PATIENT
  Age: 22 Year
  Sex: Female

DRUGS (2)
  1. XYZAL [Suspect]
     Active Substance: LEVOCETIRIZINE DIHYDROCHLORIDE
     Dosage: UNK UNK, HS 1/2 TAB HS
     Route: 065
  2. XYZAL [Suspect]
     Active Substance: LEVOCETIRIZINE DIHYDROCHLORIDE
     Indication: HISTAMINE LEVEL
     Dosage: UNK
     Route: 065

REACTIONS (2)
  - Somnolence [Unknown]
  - Therapeutic response delayed [Unknown]
